FAERS Safety Report 8493605-2 (Version None)
Quarter: 2012Q3

REPORT INFORMATION
  Report Type: 
  Country: None (occurrence: None)
  Receive Date: 20120706
  Receipt Date: 20120629
  Transmission Date: 20120928
  Serious: Yes (Other)
  Sender: FDA-Public Use
  Company Number: DK-PFIZER INC-2012157609

PATIENT
  Age: 87 Year
  Sex: Female

DRUGS (1)
  1. TOLTERODINE TARTRATE [Suspect]
     Dosage: 2.8 MG, 1X/DAY

REACTIONS (5)
  - RHINORRHOEA [None]
  - SINUSITIS [None]
  - HEPATIC ENZYME INCREASED [None]
  - RENAL FUNCTION TEST ABNORMAL [None]
  - MUSCULAR WEAKNESS [None]
